FAERS Safety Report 7897647-7 (Version None)
Quarter: 2011Q4

REPORT INFORMATION
  Report Type: 
  Country: None (occurrence: None)
  Receive Date: 20111107
  Receipt Date: 20111027
  Transmission Date: 20120403
  Serious: Yes (Other)
  Sender: FDA-Public Use
  Company Number: US-JNJFOC-20111012726

PATIENT
  Sex: Female

DRUGS (4)
  1. REMICADE [Suspect]
     Indication: PSORIASIS
     Route: 042
     Dates: start: 20110912, end: 20110101
  2. STELARA [Concomitant]
     Indication: PSORIASIS
     Route: 058
     Dates: start: 20110223, end: 20110912
  3. METHOTREXATE [Concomitant]
     Route: 048
  4. ALL OTHER THERAPEUTICS [Concomitant]
     Route: 065

REACTIONS (3)
  - HAEMOGLOBIN DECREASED [None]
  - VASCULAR OCCLUSION [None]
  - DRUG INEFFECTIVE [None]
